FAERS Safety Report 14723601 (Version 2)
Quarter: 2018Q2

REPORT INFORMATION
  Report Type: Spontaneous
  Country: US (occurrence: US)
  Receive Date: 20180405
  Receipt Date: 20180613
  Transmission Date: 20180711
  Serious: No
  Sender: FDA-Public Use
  Company Number: US-ALKERMES INC.-ALK-2018-000916

PATIENT
  Age: 19 Year
  Sex: Male

DRUGS (1)
  1. ARISTADA [Suspect]
     Active Substance: ARIPIPRAZOLE LAUROXIL
     Indication: SCHIZOPHRENIA
     Dosage: 662 MG, QMO
     Route: 030
     Dates: start: 20171204

REACTIONS (6)
  - Inappropriate schedule of drug administration [Unknown]
  - Therapeutic response shortened [Not Recovered/Not Resolved]
  - Schizophrenia [Not Recovered/Not Resolved]
  - Anger [Unknown]
  - Abnormal behaviour [Not Recovered/Not Resolved]
  - Agitation [Unknown]

NARRATIVE: CASE EVENT DATE: 2018
